FAERS Safety Report 10169799 (Version 1)
Quarter: 2014Q2

REPORT INFORMATION
  Report Type: Report from Study
  Country: US (occurrence: US)
  Receive Date: 20140513
  Receipt Date: 20140513
  Transmission Date: 20141212
  Serious: Yes (Death)
  Sender: FDA-Public Use
  Company Number: US-ACTELION-A-NJ2014-98867

PATIENT
  Age: 77 Year
  Sex: Male

DRUGS (1)
  1. VENTAVIS [Suspect]
     Indication: COR PULMONALE CHRONIC
     Route: 055

REACTIONS (1)
  - Death [Fatal]
